FAERS Safety Report 6192785-1 (Version None)
Quarter: 2009Q2

REPORT INFORMATION
  Report Type: 
  Country: None (occurrence: None)
  Receive Date: 20090518
  Receipt Date: 20090507
  Transmission Date: 20091009
  Serious: Yes (Other)
  Sender: FDA-Public Use
  Company Number: US-AMGEN-KDL346330

PATIENT
  Sex: Male
  Weight: 56.8 kg

DRUGS (14)
  1. PROCRIT [Suspect]
     Indication: RENAL FAILURE CHRONIC
     Route: 058
     Dates: start: 20070101
  2. TEGRETOL [Concomitant]
  3. VERAPAMIL [Concomitant]
     Route: 048
  4. CIMETIDINE HCL [Concomitant]
     Route: 048
  5. LASIX [Concomitant]
     Route: 048
  6. CAPTOPRIL [Concomitant]
     Route: 048
  7. RENAL SOFT GEL [Concomitant]
     Route: 048
  8. ASPIRIN [Concomitant]
     Route: 048
  9. DUONEB [Concomitant]
  10. FLOMAX [Concomitant]
     Route: 048
  11. PREDNISONE [Concomitant]
     Route: 048
  12. FOLIC ACID [Concomitant]
  13. STOOL SOFTENER [Concomitant]
  14. UNSPECIFIED MEDICATION [Concomitant]
     Route: 045

REACTIONS (2)
  - HAEMOGLOBIN DECREASED [None]
  - HIP FRACTURE [None]
